FAERS Safety Report 7027311-8 (Version None)
Quarter: 2010Q4

REPORT INFORMATION
  Report Type: 
  Country: None (occurrence: None)
  Receive Date: 20101004
  Receipt Date: 20100920
  Transmission Date: 20110411
  Serious: Yes (Other)
  Sender: FDA-Public Use
  Company Number: US-MYLANLABS-2010S1017652

PATIENT
  Sex: Male

DRUGS (3)
  1. LEVETIRACETAM [Suspect]
     Indication: CONVULSION
     Route: 065
  2. CLOBAZAM [Concomitant]
     Indication: CONVULSION
     Route: 065
  3. TOPIRAMATE [Concomitant]
     Indication: CONVULSION
     Route: 065

REACTIONS (2)
  - CONVULSION [None]
  - MYOCLONUS [None]
